FAERS Safety Report 7799446-3 (Version None)
Quarter: 2011Q4

REPORT INFORMATION
  Report Type: 
  Country: None (occurrence: None)
  Receive Date: 20111006
  Receipt Date: 20110927
  Transmission Date: 20120403
  Serious: Yes (Hospitalization)
  Sender: FDA-Public Use
  Company Number: US-PFIZER INC-2011220036

PATIENT
  Age: 37 Year
  Sex: Female

DRUGS (3)
  1. PROPRANOLOL HCL [Suspect]
     Route: 048
  2. BUPROPION HCL [Suspect]
     Route: 048
  3. CITALOPRAM HYDROBROMIDE [Suspect]
     Route: 048

REACTIONS (1)
  - CARDIOGENIC SHOCK [None]
